FAERS Safety Report 5289829-8 (Version None)
Quarter: 2007Q2

REPORT INFORMATION
  Report Type: 
  Country: None (occurrence: None)
  Receive Date: 20070406
  Receipt Date: 20070329
  Transmission Date: 20071010
  Serious: Yes (Other)
  Sender: FDA-Public Use
  Company Number: US-PFIZER INC-2006100509

PATIENT
  Sex: Male

DRUGS (3)
  1. XALATAN [Suspect]
     Route: 047
     Dates: start: 20040101, end: 20061121
  2. TIMOLOL MALEATE [Concomitant]
  3. ALL OTHER THERAPEUTIC PRODUCTS [Concomitant]

REACTIONS (4)
  - BURNING SENSATION [None]
  - EXPIRED DRUG ADMINISTERED [None]
  - EYE PAIN [None]
  - GLAUCOMA SURGERY [None]
